FAERS Safety Report 4290490-X (Version None)
Quarter: 2004Q1

REPORT INFORMATION
  Report Type: 
  Country: None (occurrence: None)
  Receive Date: 20040209
  Receipt Date: 20040127
  Transmission Date: 20041129
  Serious: Yes (Other)
  Sender: FDA-Public Use
  Company Number: 2004005829

PATIENT
  Age: 76 Year
  Sex: Female
  Weight: 40 kg

DRUGS (3)
  1. THROMBIN LOCAL SOLUTION [Suspect]
     Indication: INJECTION SITE HAEMORRHAGE
     Dosage: 1000 UNITS
     Dates: start: 19880203
  2. IOPAMIDOL (IOPPAMIDOL) [Concomitant]
  3. MONOETHANOLAMINE OLEATE (MONOETHANOLAMINE OLEATE) [Concomitant]

REACTIONS (13)
  - ASPARTATE AMINOTRANSFERASE INCREASED [None]
  - BLOOD AMYLASE INCREASED [None]
  - BLOOD FIBRINOGEN DECREASED [None]
  - BLOOD PRESSURE IMMEASURABLE [None]
  - CARDIAC ARREST [None]
  - CHEST PAIN [None]
  - ELECTROCARDIOGRAM T WAVE INVERSION [None]
  - FIBRIN DEGRADATION PRODUCTS INCREASED [None]
  - FLUSHING [None]
  - LOSS OF CONSCIOUSNESS [None]
  - PLATELET COUNT DECREASED [None]
  - RESPIRATORY ARREST [None]
  - SHOCK [None]
